FAERS Safety Report 21251850 (Version 3)
Quarter: 2022Q4

REPORT INFORMATION
  Report Type: Report from Study
  Country: FR (occurrence: FR)
  Receive Date: 20220825
  Receipt Date: 20221102
  Transmission Date: 20230112
  Serious: Yes (Hospitalization)
  Sender: FDA-Public Use
  Company Number: FR-NOVARTISPH-NVSC2022FR188090

PATIENT
  Age: 60 Year
  Sex: Male

DRUGS (4)
  1. ELTROMBOPAG [Suspect]
     Active Substance: ELTROMBOPAG
     Indication: Autologous haematopoietic stem cell transplant
     Dosage: 50 MG, EVERY 1 DAY(S)
     Route: 048
     Dates: start: 20220720
  2. NEORAL [Concomitant]
     Active Substance: CYCLOSPORINE
     Indication: Graft versus host disease
     Dosage: 25 MG, BID, DURING 3 DAYS
     Route: 048
     Dates: start: 20220327
  3. PREDNISONE [Concomitant]
     Active Substance: PREDNISONE
     Indication: Graft versus host disease
     Dosage: 10 MG, EVERY 1 DAY(S)
     Route: 048
     Dates: start: 20220428
  4. ENTOCORT [Concomitant]
     Active Substance: BUDESONIDE
     Indication: Graft versus host disease
     Dosage: 3 MG, TID
     Route: 048
     Dates: start: 20220811

REACTIONS (2)
  - Rash [Recovered/Resolved]
  - Clostridium difficile colitis [Recovered/Resolved]

NARRATIVE: CASE EVENT DATE: 20220816
